FAERS Safety Report 6985395-7 (Version None)
Quarter: 2010Q3

REPORT INFORMATION
  Report Type: 
  Country: None (occurrence: None)
  Receive Date: 20100915
  Receipt Date: 20100901
  Transmission Date: 20110219
  Serious: Yes (Other)
  Sender: FDA-Public Use
  Company Number: SE-PFIZER INC-2010110226

PATIENT
  Age: 85 Year
  Sex: Female

DRUGS (16)
  1. ATARAX [Suspect]
     Dosage: 25 MG, UNK
     Route: 048
  2. DOLOXENE [Suspect]
     Dosage: 50 MG, UNK
     Route: 048
  3. KEPPRA [Concomitant]
  4. ALVEDON [Concomitant]
  5. SIMVASTATIN [Concomitant]
  6. KALCIPOS-D [Concomitant]
  7. AMLODIPINE [Concomitant]
  8. LEVOTHYROXINE SODIUM [Concomitant]
  9. CARBOMER [Concomitant]
  10. BEHEPAN [Concomitant]
  11. LASIX [Concomitant]
  12. ASPIRIN [Concomitant]
  13. ZOLPIDEM TARTRATE [Concomitant]
  14. SPIRONOLACTONE [Concomitant]
  15. PANTOPRAZOLE [Concomitant]
  16. LANTUS [Concomitant]

REACTIONS (1)
  - URINARY RETENTION [None]
